FAERS Safety Report 10210567 (Version 2)
Quarter: 2014Q2

REPORT INFORMATION
  Report Type: Spontaneous
  Country: US (occurrence: US)
  Receive Date: 20140602
  Receipt Date: 20140624
  Transmission Date: 20141212
  Serious: No
  Sender: FDA-Public Use
  Company Number: US-B.I. PHARMACEUTICALS,INC./RIDGEFIELD-2014-BI-22414BP

PATIENT
  Age: 91 Year
  Sex: Male

DRUGS (1)
  1. COMBIVENT [Suspect]
     Indication: ASTHMA
     Dosage: DOSE PER APPLICATION: 60 MCG / 400 MCG; DAILY DOSE: 240 MCG/ 1200 MCG
     Route: 055
     Dates: start: 201306

REACTIONS (3)
  - Overdose [Not Recovered/Not Resolved]
  - Off label use [Unknown]
  - Product quality issue [Not Recovered/Not Resolved]
